FAERS Safety Report 10761112 (Version 1)
Quarter: 2015Q1

REPORT INFORMATION
  Report Type: Spontaneous
  Country: US (occurrence: None)
  Receive Date: 20150203
  Receipt Date: 20150203
  Transmission Date: 20150721
  Serious: No
  Sender: FDA-Public Use
  Company Number: None

PATIENT
  Sex: Female

DRUGS (1)
  1. NEUPOGEN [Suspect]
     Active Substance: FILGRASTIM
     Indication: LEUKOPENIA
     Dosage: 25MCG, DAILY, SQ
     Route: 058
     Dates: start: 20140612

REACTIONS (1)
  - Therapy cessation [None]
